FAERS Safety Report 15859919 (Version 4)
Quarter: 2019Q2

REPORT INFORMATION
  Report Type: Spontaneous
  Country: FR (occurrence: FR)
  Receive Date: 20190123
  Receipt Date: 20190515
  Transmission Date: 20190711
  Serious: Yes (Death, Hospitalization)
  Sender: FDA-Public Use
  Company Number: FR-MYLANLABS-2019M1006109

PATIENT
  Age: 79 Year
  Sex: Male

DRUGS (4)
  1. COVERSYL                           /00790703/ [Suspect]
     Active Substance: PERINDOPRIL
     Indication: ACUTE CORONARY SYNDROME
     Dosage: 2 DOSAGE FORM, QD
     Route: 048
     Dates: end: 20180623
  2. PRADAXA [Suspect]
     Active Substance: DABIGATRAN ETEXILATE MESYLATE
     Indication: ACUTE CORONARY SYNDROME
     Dosage: 110 MILLIGRAM, QD
     Route: 048
     Dates: start: 20180409, end: 20180623
  3. SOTALOL. [Suspect]
     Active Substance: SOTALOL
     Indication: ACUTE CORONARY SYNDROME
     Dosage: 1 DOSAGE FORM, QD
     Route: 048
     Dates: end: 20180623
  4. LIPTRUZET [Suspect]
     Active Substance: ATORVASTATIN CALCIUM\EZETIMIBE
     Indication: ACUTE CORONARY SYNDROME
     Dosage: 1 DOSAGE FORM, QD
     Route: 048
     Dates: end: 20180623

REACTIONS (1)
  - Cerebral haemorrhage [Fatal]

NARRATIVE: CASE EVENT DATE: 20180623
